FAERS Safety Report 6111103-8 (Version None)
Quarter: 2009Q1

REPORT INFORMATION
  Report Type: 
  Country: None (occurrence: None)
  Receive Date: 20090309
  Receipt Date: 20090309
  Transmission Date: 20090719
  Serious: Yes (Life-Threatening, Disabling, Other)
  Sender: FDA-Public Use
  Company Number: None

PATIENT
  Age: 40 Year
  Sex: Female
  Weight: 53.978 kg

DRUGS (1)
  1. FENTANYL [Suspect]
     Indication: ROAD TRAFFIC ACCIDENT
     Dosage: 1 PATCH DAILY TRANSDERMAL
     Route: 062
     Dates: start: 20070610, end: 20071110

REACTIONS (4)
  - ABASIA [None]
  - OVERDOSE [None]
  - PAIN IN EXTREMITY [None]
  - RENAL FAILURE [None]
